FAERS Safety Report 18649947 (Version 1)
Quarter: 2020Q4

REPORT INFORMATION
  Report Type: Report from Study
  Country: MX (occurrence: MX)
  Receive Date: 20201222
  Receipt Date: 20201222
  Transmission Date: 20210114
  Serious: Yes (Other)
  Sender: FDA-Public Use
  Company Number: NVSC2020MX307620

PATIENT
  Sex: Female
  Weight: 74 kg

DRUGS (2)
  1. GLIVEC [Suspect]
     Active Substance: IMATINIB MESYLATE
     Indication: CHRONIC MYELOID LEUKAEMIA
     Dosage: 400 MG, QD (4 OF 100 MG)
     Route: 048
     Dates: start: 2016, end: 202002
  2. GLIVEC [Suspect]
     Active Substance: IMATINIB MESYLATE
     Dosage: 200 MG, Q12H (EVERY 12 HOURS)
     Route: 048
     Dates: end: 202005

REACTIONS (17)
  - Burning sensation [Not Recovered/Not Resolved]
  - Paraesthesia [Not Recovered/Not Resolved]
  - Vomiting [Not Recovered/Not Resolved]
  - Dyspepsia [Not Recovered/Not Resolved]
  - Swelling [Recovered/Resolved]
  - Peripheral swelling [Recovered/Resolved]
  - Gastric disorder [Not Recovered/Not Resolved]
  - Gastritis [Not Recovered/Not Resolved]
  - Headache [Recovered/Resolved]
  - Pharyngitis [Recovered/Resolved]
  - Product use in unapproved indication [Unknown]
  - Periorbital swelling [Recovered/Resolved]
  - Bone pain [Not Recovered/Not Resolved]
  - Discomfort [Unknown]
  - Angina pectoris [Recovered/Resolved]
  - Fluid retention [Recovered/Resolved]
  - Ulcer [Recovered/Resolved]

NARRATIVE: CASE EVENT DATE: 2016
